FAERS Safety Report 25462114 (Version 1)
Quarter: 2025Q2

REPORT INFORMATION
  Report Type: Spontaneous
  Country: JP (occurrence: JP)
  Receive Date: 20250620
  Receipt Date: 20250620
  Transmission Date: 20250716
  Serious: Yes (Other)
  Sender: PFIZER
  Company Number: JP-PFIZER INC-PV202500061478

PATIENT
  Age: 88 Year
  Sex: Female

DRUGS (11)
  1. PAXLOVID [Suspect]
     Active Substance: NIRMATRELVIR\RITONAVIR
     Indication: COVID-19 treatment
     Route: 048
     Dates: start: 20250512, end: 202505
  2. MAGNESIUM OXIDE [Concomitant]
     Active Substance: MAGNESIUM OXIDE
  3. MEMANTINE HYDROCHLORIDE [Concomitant]
     Active Substance: MEMANTINE HYDROCHLORIDE
  4. ASPIRIN\VONOPRAZAN FUMARATE [Concomitant]
     Active Substance: ASPIRIN\VONOPRAZAN FUMARATE
  5. FUROSEMIDE [Concomitant]
     Active Substance: FUROSEMIDE
  6. ATORVASTATIN [Concomitant]
     Active Substance: ATORVASTATIN
  7. ENTRESTO [Concomitant]
     Active Substance: SACUBITRIL\VALSARTAN
  8. CARVEDILOL [Concomitant]
     Active Substance: CARVEDILOL
  9. URAPIDIL [Concomitant]
     Active Substance: URAPIDIL
  10. TIAPRIDE [Concomitant]
     Active Substance: TIAPRIDE
  11. GALANTAMINE [Concomitant]
     Active Substance: GALANTAMINE

REACTIONS (5)
  - Delirium [Unknown]
  - Disease progression [Unknown]
  - Therapeutic product effect incomplete [Recovered/Resolved with Sequelae]
  - Dyspnoea [Unknown]
  - Gait disturbance [Unknown]

NARRATIVE: CASE EVENT DATE: 20250521
